FAERS Safety Report 6146305-8 (Version None)
Quarter: 2009Q2

REPORT INFORMATION
  Report Type: 
  Country: None (occurrence: None)
  Receive Date: 20090407
  Receipt Date: 20090331
  Transmission Date: 20091009
  Serious: Yes (Hospitalization)
  Sender: FDA-Public Use
  Company Number: US-ASTRAZENECA-2009UW08094

PATIENT
  Age: 79 Year
  Sex: Female

DRUGS (6)
  1. CRESTOR [Suspect]
     Indication: BLOOD CHOLESTEROL
     Route: 048
  2. CRESTOR [Suspect]
     Route: 048
  3. NEXIUM [Concomitant]
     Route: 048
  4. DETROL [Concomitant]
  5. LISINOPRIL [Concomitant]
     Route: 048
  6. CARTIA XT [Concomitant]

REACTIONS (4)
  - CHEST PAIN [None]
  - HYPERTENSION [None]
  - PAIN IN EXTREMITY [None]
  - PULMONARY EMBOLISM [None]
